FAERS Safety Report 11746426 (Version 1)
Quarter: 2015Q4

REPORT INFORMATION
  Report Type: Spontaneous
  Country: US (occurrence: None)
  Receive Date: 20151116
  Receipt Date: 20151116
  Transmission Date: 20160304
  Serious: No
  Sender: FDA-Public Use
  Company Number: None

PATIENT
  Age: 63 Year
  Sex: Female
  Weight: 72.58 kg

DRUGS (2)
  1. COZAAR [Suspect]
     Active Substance: LOSARTAN POTASSIUM
     Indication: HYPERTENSION
     Dosage: 25 MG, 9AM DAILY
     Route: 048
     Dates: start: 20151106, end: 20151110
  2. SYNTHROID [Concomitant]
     Active Substance: LEVOTHYROXINE SODIUM

REACTIONS (7)
  - Pain in jaw [None]
  - Erythema [None]
  - Swelling face [None]
  - Pharyngeal oedema [None]
  - Inflammation [None]
  - Lymphadenopathy [None]
  - Hypersensitivity [None]

NARRATIVE: CASE EVENT DATE: 20151108
